FAERS Safety Report 8535008-8 (Version None)
Quarter: 2012Q3

REPORT INFORMATION
  Report Type: 
  Country: None (occurrence: None)
  Receive Date: 20120724
  Receipt Date: 20120711
  Transmission Date: 20120928
  Serious: Yes (Other)
  Sender: FDA-Public Use
  Company Number: JP-PFIZER INC-2012142121

PATIENT
  Age: 85 Year
  Sex: Male

DRUGS (1)
  1. AMIODARONE HCL [Suspect]
     Indication: ATRIAL FIBRILLATION
     Dosage: 100 MG, UNKNOWN
     Route: 048

REACTIONS (5)
  - INTERSTITIAL LUNG DISEASE [None]
  - PERICARDITIS [None]
  - PERICARDIAL EFFUSION [None]
  - PLEURISY [None]
  - PLEURAL EFFUSION [None]
